FAERS Safety Report 8071418-3 (Version None)
Quarter: 2012Q1

REPORT INFORMATION
  Report Type: 
  Country: None (occurrence: None)
  Receive Date: 20120125
  Receipt Date: 20120117
  Transmission Date: 20120608
  Serious: Yes (Hospitalization)
  Sender: FDA-Public Use
  Company Number: US-ELI_LILLY_AND_COMPANY-US201201006045

PATIENT
  Age: 59 Year
  Sex: Female

DRUGS (4)
  1. HUMALOG MIX 75/25 [Suspect]
     Indication: TYPE 2 DIABETES MELLITUS
     Dosage: 50 U, EACH MORNING
  2. HUMALOG MIX 75/25 [Suspect]
     Dosage: 50 U, EACH EVENING
  3. HUMULIN 70/30 [Suspect]
     Indication: TYPE 2 DIABETES MELLITUS
     Dosage: UNK, UNKNOWN
  4. HUMULIN R [Suspect]
     Indication: TYPE 2 DIABETES MELLITUS
     Dosage: UNK, PRN

REACTIONS (2)
  - VISUAL IMPAIRMENT [None]
  - BLOOD GLUCOSE INCREASED [None]
